FAERS Safety Report 16223630 (Version 3)
Quarter: 2019Q2

REPORT INFORMATION
  Report Type: Spontaneous
  Country: None (occurrence: FR)
  Receive Date: 20190422
  Receipt Date: 20190529
  Transmission Date: 20190711
  Serious: Yes (Other)
  Sender: FDA-Public Use
  Company Number: FR-PROVELL PHARMACEUTICALS-2066094

PATIENT
  Age: 37 Year
  Sex: Female
  Weight: 100 kg

DRUGS (2)
  1. LOXEN [Concomitant]
  2. EUTHYROX [Suspect]
     Active Substance: LEVOTHYROXINE SODIUM
     Indication: HYPOTHYROIDISM
     Dates: start: 201705, end: 201709

REACTIONS (13)
  - Abortion spontaneous [Recovered/Resolved]
  - Insomnia [Recovered/Resolved]
  - Asthenia [None]
  - Memory impairment [Recovered/Resolved]
  - Cold sweat [Recovered/Resolved]
  - Muscle spasms [None]
  - Dizziness [Recovered/Resolved]
  - Myalgia [None]
  - Vertigo [Recovered/Resolved]
  - Blood pressure increased [None]
  - Maternal exposure during pregnancy [Recovered/Resolved]
  - Alopecia [Recovered/Resolved]
  - Fatigue [Recovered/Resolved]

NARRATIVE: CASE EVENT DATE: 2017
